FAERS Safety Report 24409778 (Version 1)
Quarter: 2024Q4

REPORT INFORMATION
  Report Type: Spontaneous
  Country: US (occurrence: US)
  Receive Date: 20241008
  Receipt Date: 20241008
  Transmission Date: 20250115
  Serious: No
  Sender: MANKIND PHARMA
  Company Number: US-MankindUS-000215

PATIENT

DRUGS (1)
  1. TOBRAMYCIN [Suspect]
     Active Substance: TOBRAMYCIN\TOBRAMYCIN SULFATE
     Indication: Product used for unknown indication
     Dosage: 300 MG/5 ML

REACTIONS (1)
  - Product taste abnormal [Unknown]
